FAERS Safety Report 16386807 (Version 4)
Quarter: 2019Q2

REPORT INFORMATION
  Report Type: Spontaneous
  Country: JP (occurrence: JP)
  Receive Date: 20190604
  Receipt Date: 20190628
  Transmission Date: 20190711
  Serious: Yes (Hospitalization, Disabling)
  Sender: FDA-Public Use
  Company Number: JP-BEH-2019102963

PATIENT
  Age: 2 Year
  Sex: Male
  Weight: 13.5 kg

DRUGS (21)
  1. IDELVION [Suspect]
     Active Substance: COAGULATION FACTOR IX RECOMBINANT HUMAN
     Dosage: 500 IU, SINGLE
     Route: 042
     Dates: start: 20190502, end: 20190502
  2. KIPRES [Concomitant]
     Active Substance: MONTELUKAST SODIUM
     Indication: BRONCHITIS
     Dosage: 4 MILLIGRAM, DAILY
     Route: 048
     Dates: start: 20190427, end: 20190502
  3. BENEFIX [Concomitant]
     Active Substance: COAGULATION FACTOR IX RECOMBINANT HUMAN\ISOPROPYL ALCOHOL
     Dosage: 500 INTERNATIONAL UNIT, ONCE A WEEK
     Dates: start: 20170627, end: 20170814
  4. IDELVION [Suspect]
     Active Substance: COAGULATION FACTOR IX RECOMBINANT HUMAN
     Dosage: 500 IU, SINGLE
     Route: 042
     Dates: start: 20190427, end: 20190427
  5. XYZAL [Concomitant]
     Active Substance: LEVOCETIRIZINE DIHYDROCHLORIDE
     Indication: RHINITIS
     Dosage: 5 MILLILITER, DAILY
     Route: 048
     Dates: start: 20190427, end: 20190502
  6. HOKUNALIN [TULOBUTEROL HYDROCHLORIDE] [Concomitant]
     Indication: BRONCHITIS
     Dosage: 0.5 MILLIGRAM, DAILY
     Route: 062
     Dates: start: 20190427, end: 20190502
  7. IDELVION [Suspect]
     Active Substance: COAGULATION FACTOR IX RECOMBINANT HUMAN
     Indication: HAEMOSTASIS
     Dosage: 500 IU, SINGLE
     Route: 042
     Dates: start: 20190420, end: 20190420
  8. IDELVION [Suspect]
     Active Substance: COAGULATION FACTOR IX RECOMBINANT HUMAN
     Dosage: 500 INTERNATIONAL UNIT, 1 WEEK
     Route: 042
     Dates: start: 20181015, end: 20190502
  9. BENEFIX [Concomitant]
     Active Substance: COAGULATION FACTOR IX RECOMBINANT HUMAN\ISOPROPYL ALCOHOL
     Dosage: 500 IU, UNK
     Route: 065
     Dates: start: 20190501
  10. BENEFIX [Concomitant]
     Active Substance: COAGULATION FACTOR IX RECOMBINANT HUMAN\ISOPROPYL ALCOHOL
     Dosage: 500 INTERNATIONAL UNIT, ONCE A WEEK
     Route: 065
     Dates: start: 20170601, end: 20181009
  11. IDELVION [Suspect]
     Active Substance: COAGULATION FACTOR IX RECOMBINANT HUMAN
     Indication: HAEMOSTASIS
     Dosage: 500 IU, SINGLE
     Route: 042
     Dates: start: 20190420, end: 20190420
  12. BYCLOT [Concomitant]
     Active Substance: COAGULATION FACTOR VII HUMAN\COAGULATION FACTOR X HUMAN
     Dosage: UNK
     Route: 065
     Dates: start: 20190502, end: 20190503
  13. MIYA-BM [Concomitant]
     Active Substance: CLOSTRIDIUM BUTYRICUM SPORES STRAIN M-55
     Indication: DIARRHOEA
     Dosage: ONE THIRD OF DAILY DOSE (1.0)
     Route: 048
     Dates: start: 20190427, end: 20190502
  14. ALBUMIN TANNATE [Concomitant]
     Active Substance: ALBUMIN BOVINE\TANNIC ACID
     Indication: DIARRHOEA
     Dosage: ONE THIRD OF DAILY DOSE (1.0)
     Route: 048
     Dates: start: 20190427, end: 20190502
  15. IDELVION [Suspect]
     Active Substance: COAGULATION FACTOR IX RECOMBINANT HUMAN
     Indication: FACTOR IX DEFICIENCY
     Dosage: 500 IU, TWICE WEEKLY
     Route: 042
     Dates: start: 20180901
  16. BENEFIX [Concomitant]
     Active Substance: COAGULATION FACTOR IX RECOMBINANT HUMAN\ISOPROPYL ALCOHOL
     Dosage: 500 INTERNATIONAL UNIT, TWICE A WEEK
     Route: 065
     Dates: start: 20170815, end: 20181009
  17. IDELVION [Suspect]
     Active Substance: COAGULATION FACTOR IX RECOMBINANT HUMAN
     Dosage: 500 IU, SINGLE
     Route: 042
     Dates: start: 20190502, end: 20190502
  18. IDELVION [Suspect]
     Active Substance: COAGULATION FACTOR IX RECOMBINANT HUMAN
     Dosage: 500 INTERNATIONAL UNIT, 1 WEEK
     Route: 042
     Dates: start: 20181015, end: 20190502
  19. IDELVION [Suspect]
     Active Substance: COAGULATION FACTOR IX RECOMBINANT HUMAN
     Indication: FACTOR IX DEFICIENCY
     Dosage: 500 IU, TWICE WEEKLY
     Route: 042
     Dates: start: 20180901
  20. IDELVION [Suspect]
     Active Substance: COAGULATION FACTOR IX RECOMBINANT HUMAN
     Dosage: 500 IU, SINGLE
     Route: 042
     Dates: start: 20190427, end: 20190427
  21. PREDONINE [Concomitant]
     Active Substance: PREDNISOLONE
     Dosage: UNK
     Route: 048
     Dates: start: 20190502

REACTIONS (3)
  - Factor IX inhibition [Not Recovered/Not Resolved]
  - Purpura [Unknown]
  - Subcutaneous haematoma [Recovered/Resolved]

NARRATIVE: CASE EVENT DATE: 20190430
